FAERS Safety Report 25949867 (Version 1)
Quarter: 2025Q4

REPORT INFORMATION
  Report Type: Spontaneous
  Country: US (occurrence: US)
  Receive Date: 20251022
  Receipt Date: 20251022
  Transmission Date: 20260117
  Serious: Yes (Other)
  Sender: PFIZER
  Company Number: US-PFIZER INC-202500103310

PATIENT
  Age: 81 Year
  Sex: Female

DRUGS (1)
  1. TALZENNA [Suspect]
     Active Substance: TALAZOPARIB TOSYLATE
     Dosage: 0.75 MG TAKE 1 CAPSULE BY MOUTH 1 TIME EACH DAY
     Route: 048

REACTIONS (1)
  - Malignant neoplasm progression [Unknown]
